FAERS Safety Report 9892218 (Version 3)
Quarter: 2014Q2

REPORT INFORMATION
  Report Type: Spontaneous
  Country: JP (occurrence: JP)
  Receive Date: 20140212
  Receipt Date: 20140423
  Transmission Date: 20141212
  Serious: Yes (Death, Life-Threatening, Other)
  Sender: FDA-Public Use
  Company Number: JP-TEVA-460263USA

PATIENT
  Age: 68 Year
  Sex: Male

DRUGS (15)
  1. BENDAMUSTINE [Suspect]
     Indication: B-CELL LYMPHOMA
     Route: 042
     Dates: start: 20130911, end: 20130912
  2. BENDAMUSTINE [Suspect]
     Route: 042
     Dates: start: 20130729, end: 20130730
  3. BENDAMUSTINE [Suspect]
     Route: 042
     Dates: start: 20130708, end: 20130709
  4. BENDAMUSTINE [Suspect]
     Route: 042
     Dates: start: 20130617, end: 20130618
  5. BENDAMUSTINE [Suspect]
     Dates: start: 20130527, end: 20130528
  6. REBAMIPIDE [Suspect]
  7. MAGNESIUM OXIDE [Suspect]
  8. RABEPRAZOLE SODIUM [Concomitant]
     Dates: start: 20130321, end: 20131030
  9. CLOPIDOGREL SULFATE [Concomitant]
     Dates: start: 20130321, end: 20131009
  10. ACETYLSALICYLIC ACID [Concomitant]
     Dates: start: 20130321, end: 20131009
  11. ROSUVASTATIN CALCIUM [Concomitant]
     Dates: start: 20130321, end: 20140306
  12. BACTRIM [Concomitant]
     Dates: start: 20130321, end: 20131030
  13. VALACICLOVIR HYDROCHLORIDE [Concomitant]
     Dates: start: 20130530, end: 20131030
  14. LANSOPRAZOLE [Concomitant]
     Dates: start: 20131031, end: 20140306
  15. FEBUXOSTAT [Concomitant]
     Dates: start: 20130530, end: 20140306

REACTIONS (3)
  - Bone marrow failure [Fatal]
  - Pneumocystis jirovecii pneumonia [Fatal]
  - Drug eruption [Recovered/Resolved]
